FAERS Safety Report 21058991 (Version 1)
Quarter: 2022Q3

REPORT INFORMATION
  Report Type: Spontaneous
  Country: GB (occurrence: GB)
  Receive Date: 20220708
  Receipt Date: 20220708
  Transmission Date: 20221027
  Serious: Yes (Life-Threatening)
  Sender: FDA-Public Use
  Company Number: GB-MHRA-MED-202206301118592530-QPKCL

PATIENT
  Age: 78 Year
  Sex: Male
  Weight: 78 kg

DRUGS (19)
  1. REMICADE [Suspect]
     Active Substance: INFLIXIMAB
     Indication: Colitis
     Route: 041
     Dates: start: 20220608
  2. CALCIUM CARBONATE\CHOLECALCIFEROL [Concomitant]
     Active Substance: CALCIUM CARBONATE\CHOLECALCIFEROL
  3. AMLODIPINE [Concomitant]
     Active Substance: AMLODIPINE BESYLATE
  4. AMOXICILLIN\CLAVULANATE POTASSIUM [Concomitant]
     Active Substance: AMOXICILLIN\CLAVULANATE POTASSIUM
  5. DOXAZOSIN [Concomitant]
     Active Substance: DOXAZOSIN MESYLATE
  6. ENOXAPARIN [Concomitant]
     Active Substance: ENOXAPARIN
  7. FUROSEMIDE [Concomitant]
     Active Substance: FUROSEMIDE
  8. HALOPERIDOL [Concomitant]
     Active Substance: HALOPERIDOL
  9. HYDROCORTISONE [Concomitant]
     Active Substance: HYDROCORTISONE
  10. METRONIDAZOLE [Concomitant]
     Active Substance: METRONIDAZOLE
  11. MORPHINE [Concomitant]
     Active Substance: MORPHINE
  12. OMEPRAZOLE [Concomitant]
     Active Substance: OMEPRAZOLE
  13. PABRINEX [ASCORBIC ACID;NICOTINAMIDE;PYRIDOXINE HYDROCHLORIDE;RIBOFLAV [Concomitant]
  14. ACETAMINOPHEN [Concomitant]
     Active Substance: ACETAMINOPHEN
  15. PREDNISOLONE [Concomitant]
     Active Substance: PREDNISOLONE
  16. RAMIPRIL [Concomitant]
     Active Substance: RAMIPRIL
  17. ALBUTEROL [Concomitant]
     Active Substance: ALBUTEROL
  18. PIPERACILLIN SODIUM\TAZOBACTAM SODIUM [Concomitant]
     Active Substance: PIPERACILLIN SODIUM\TAZOBACTAM SODIUM
  19. VITAMIN B COMPLEX [NICOTINAMIDE;PYRIDOXINE HYDROCHLORIDE;RIBOFLAVIN;TH [Concomitant]

REACTIONS (1)
  - Aspergilloma [Not Recovered/Not Resolved]

NARRATIVE: CASE EVENT DATE: 20220622
